FAERS Safety Report 6225056-5 (Version None)
Quarter: 2009Q2

REPORT INFORMATION
  Report Type: 
  Country: None (occurrence: None)
  Receive Date: 20090612
  Receipt Date: 20090406
  Transmission Date: 20091009
  Serious: No
  Sender: FDA-Public Use
  Company Number: US-ABBOTT-09P-163-0566806-00

PATIENT
  Sex: Female
  Weight: 64.922 kg

DRUGS (11)
  1. HUMIRA [Suspect]
     Indication: PSORIATIC ARTHROPATHY
     Route: 058
     Dates: start: 20081201
  2. HUMIRA [Suspect]
     Indication: OSTEOARTHRITIS
  3. ZETIA [Concomitant]
     Indication: BLOOD CHOLESTEROL INCREASED
  4. CRESTOR [Concomitant]
     Indication: BLOOD CHOLESTEROL INCREASED
  5. ADIPEX [Concomitant]
     Indication: WEIGHT CONTROL
  6. LEXAPRO [Concomitant]
     Indication: ANXIOLYTIC THERAPY
  7. SOLUTAB [Concomitant]
     Indication: GASTROOESOPHAGEAL REFLUX DISEASE
  8. CELEBREX [Concomitant]
     Indication: BREAKTHROUGH PAIN
  9. OXITROL [Concomitant]
     Indication: URINARY INCONTINENCE
     Route: 062
  10. ELIMIRON [Concomitant]
     Indication: URINARY INCONTINENCE
     Route: 048
  11. UNKNOWN CREAMS [Concomitant]
     Indication: PRURITUS

REACTIONS (1)
  - INJECTION SITE PAIN [None]
